FAERS Safety Report 9230410 (Version 2)
Quarter: 2013Q2

REPORT INFORMATION
  Report Type: Spontaneous
  Country: IT (occurrence: None)
  Receive Date: 20130411
  Receipt Date: 20130426
  Transmission Date: 20140414
  Serious: Yes (Hospitalization)
  Sender: FDA-Public Use
  Company Number: ACO_35297_2013

PATIENT
  Age: 55 Year
  Sex: Male

DRUGS (3)
  1. FAMPRIDINE-SR [Suspect]
     Indication: MULTIPLE SCLEROSIS
     Dosage: UNK, BID, ORAL
     Route: 048
     Dates: start: 20130201
  2. FINGOLIMOD [Concomitant]
  3. BACLOFEN (BACLOFEN) (BACLOFEN) [Concomitant]

REACTIONS (2)
  - Prostatitis [None]
  - Urinary tract infection [None]
